FAERS Safety Report 23039658 (Version 4)
Quarter: 2024Q1

REPORT INFORMATION
  Report Type: Spontaneous
  Country: JP (occurrence: JP)
  Receive Date: 20231006
  Receipt Date: 20240320
  Transmission Date: 20240410
  Serious: Yes (Life-Threatening, Hospitalization)
  Sender: FDA-Public Use
  Company Number: JP-ELI_LILLY_AND_COMPANY-JP202309003970

PATIENT
  Age: 66 Year
  Sex: Male
  Weight: 108 kg

DRUGS (13)
  1. MOUNJARO [Suspect]
     Active Substance: TIRZEPATIDE
     Indication: Diabetes mellitus
     Dosage: 2.5 MG
     Route: 058
     Dates: start: 2023
  2. MOUNJARO [Suspect]
     Active Substance: TIRZEPATIDE
     Dosage: 5 MG
     Route: 058
     Dates: start: 20230720, end: 20230829
  3. MOUNJARO [Suspect]
     Active Substance: TIRZEPATIDE
     Dosage: 5 MG
     Route: 058
     Dates: start: 202310, end: 20231109
  4. IPRAGLIFLOZIN L-PROLINE [Suspect]
     Active Substance: IPRAGLIFLOZIN L-PROLINE
     Indication: Diabetes mellitus
     Dosage: 50 MG, DAILY
     Route: 065
     Dates: start: 20220914, end: 202309
  5. IPRAGLIFLOZIN L-PROLINE [Suspect]
     Active Substance: IPRAGLIFLOZIN L-PROLINE
     Dosage: 50 MG, DAILY
     Route: 065
  6. LYRICA [Concomitant]
     Active Substance: PREGABALIN
  7. DISULFIRAM [Concomitant]
     Active Substance: DISULFIRAM
     Route: 048
  8. VONOPRAZAN FUMARATE [Concomitant]
     Active Substance: VONOPRAZAN FUMARATE
     Dosage: 10 MG, DAILY
     Dates: start: 20211223
  9. METHYLCOBALAMIN [Concomitant]
     Active Substance: METHYLCOBALAMIN
  10. EBRANTIL KAKEN [Concomitant]
  11. MEMANTINE HYDROCHLORIDE [Concomitant]
     Active Substance: MEMANTINE HYDROCHLORIDE
  12. ROZEREM [Concomitant]
     Active Substance: RAMELTEON
  13. REBAMIPIDE [Concomitant]
     Active Substance: REBAMIPIDE

REACTIONS (4)
  - Euglycaemic diabetic ketoacidosis [Recovered/Resolved]
  - COVID-19 [Unknown]
  - COVID-19 [Unknown]
  - Influenza virus test positive [Unknown]

NARRATIVE: CASE EVENT DATE: 20231107
